FAERS Safety Report 8246774-3 (Version None)
Quarter: 2012Q1

REPORT INFORMATION
  Report Type: 
  Country: None (occurrence: None)
  Receive Date: 20120330
  Receipt Date: 20120326
  Transmission Date: 20120608
  Serious: Yes (Disabling)
  Sender: FDA-Public Use
  Company Number: US-PFIZER INC-2012037018

PATIENT
  Sex: Male

DRUGS (7)
  1. ALBUTEROL [Concomitant]
     Dosage: UNK
  2. ADVAIR DISKUS 100/50 [Concomitant]
     Dosage: UNK
  3. EFFEXOR XR [Suspect]
     Dosage: 150 MG TWICE DAILY
     Route: 048
  4. VENTOLIN [Concomitant]
     Dosage: UNK
  5. OXYGEN [Concomitant]
     Dosage: UNK
  6. SPIRIVA [Concomitant]
     Dosage: UNK
  7. ZYPREXA [Concomitant]
     Dosage: UNK

REACTIONS (3)
  - IMPAIRED WORK ABILITY [None]
  - CHRONIC OBSTRUCTIVE PULMONARY DISEASE [None]
  - PULMONARY MASS [None]
